FAERS Safety Report 18539296 (Version 1)
Quarter: 2020Q4

REPORT INFORMATION
  Report Type: Spontaneous
  Country: US (occurrence: US)
  Receive Date: 20201123
  Receipt Date: 20201123
  Transmission Date: 20210114
  Serious: No
  Sender: FDA-Public Use
  Company Number: None

PATIENT
  Age: 79 Year
  Sex: Female
  Weight: 60 kg

DRUGS (1)
  1. RITUXAN HYCELA [Suspect]
     Active Substance: HYALURONIDASE (HUMAN RECOMBINANT)\RITUXIMAB
     Indication: B-CELL LYMPHOMA
     Dosage: ?          OTHER FREQUENCY:WEEKLY;?
     Route: 058
     Dates: start: 20201008, end: 20201008

REACTIONS (12)
  - Fatigue [None]
  - Injection site erythema [None]
  - Abdominal tenderness [None]
  - Night sweats [None]
  - Rash [None]
  - Hyperhidrosis [None]
  - Body temperature fluctuation [None]
  - Fluid intake reduced [None]
  - Diarrhoea [None]
  - Decreased appetite [None]
  - Feeling cold [None]
  - Nausea [None]

NARRATIVE: CASE EVENT DATE: 20201008
